FAERS Safety Report 13734031 (Version 1)
Quarter: 2017Q3

REPORT INFORMATION
  Report Type: Spontaneous
  Country: JP (occurrence: JP)
  Receive Date: 20170708
  Receipt Date: 20170708
  Transmission Date: 20171127
  Serious: Yes (Death, Hospitalization, Other)
  Sender: FDA-Public Use
  Company Number: JP-AMGEN-JPNSP2017079486

PATIENT
  Age: 68 Year
  Sex: Female

DRUGS (3)
  1. KYPROLIS [Suspect]
     Active Substance: CARFILZOMIB
     Indication: PLASMA CELL MYELOMA
     Dosage: 28 MG, UNK
     Route: 041
     Dates: start: 20170414, end: 20170414
  2. KYPROLIS [Suspect]
     Active Substance: CARFILZOMIB
     Dosage: 28 MG, UNK
     Route: 041
     Dates: start: 20170509, end: 20170509
  3. KYPROLIS [Suspect]
     Active Substance: CARFILZOMIB
     Dosage: 28 MG, UNK
     Route: 041
     Dates: start: 20170425, end: 20170425

REACTIONS (3)
  - Renal impairment [Unknown]
  - Infection [Fatal]
  - Interstitial lung disease [Recovered/Resolved]

NARRATIVE: CASE EVENT DATE: 2017
